FAERS Safety Report 15426929 (Version 1)
Quarter: 2018Q3

REPORT INFORMATION
  Report Type: Report from Study
  Country: US (occurrence: US)
  Receive Date: 20180925
  Receipt Date: 20180925
  Transmission Date: 20181010
  Serious: Yes (Other)
  Sender: FDA-Public Use
  Company Number: US-ACTELION-A-US2018-177926

PATIENT
  Age: 87 Year
  Sex: Female

DRUGS (31)
  1. FLUCONAZOLE. [Concomitant]
     Active Substance: FLUCONAZOLE
  2. FAMOTIDINE. [Concomitant]
     Active Substance: FAMOTIDINE
     Dosage: 20 MG, UNK
     Dates: start: 20180201
  3. MIDORINE [Concomitant]
     Active Substance: MIDODRINE
     Dosage: 5 MG, UNK
     Dates: start: 20180713
  4. VITAMIN D [Concomitant]
     Active Substance: CHOLECALCIFEROL
     Dosage: 50000 U, UNK
     Dates: start: 20180808
  5. FLUTICASONE. [Concomitant]
     Active Substance: FLUTICASONE
     Dosage: 50 MCG, UNK
     Dates: start: 20180702
  6. TRAMADOL. [Concomitant]
     Active Substance: TRAMADOL
     Dosage: 50 MG, UNK
     Dates: start: 20180827
  7. LINZESS [Concomitant]
     Active Substance: LINACLOTIDE
     Dosage: 72 MCG, UNK
     Dates: start: 20180324
  8. LIOTHYRONINE [Concomitant]
     Active Substance: LIOTHYRONINE
  9. CARVEDILOL. [Concomitant]
     Active Substance: CARVEDILOL
     Dosage: 3.125 MG, UNK
     Dates: start: 20180102
  10. CEPHALEXIN. [Concomitant]
     Active Substance: CEPHALEXIN
  11. CALCIUM ACETATE. [Concomitant]
     Active Substance: CALCIUM ACETATE
     Dosage: 667 MG, UNK
     Dates: start: 20180328
  12. NYSTATIN. [Concomitant]
     Active Substance: NYSTATIN
  13. SIMVASTATIN. [Concomitant]
     Active Substance: SIMVASTATIN
     Dosage: 40 MG, UNK
     Dates: start: 20180331
  14. ALLOPURINOL. [Concomitant]
     Active Substance: ALLOPURINOL
     Dosage: 100 MG, UNK
     Dates: start: 20180209
  15. TYLENOL [Concomitant]
     Active Substance: ACETAMINOPHEN
     Dosage: 500 MG, UNK
     Dates: start: 20170918
  16. ISOSORBIDE MONONITE [Concomitant]
  17. LORATADINE. [Concomitant]
     Active Substance: LORATADINE
  18. FUROSEMIDE. [Concomitant]
     Active Substance: FUROSEMIDE
  19. SERTRALINE [Concomitant]
     Active Substance: SERTRALINE HYDROCHLORIDE
     Dosage: 50 MG, UNK
     Dates: start: 20180603
  20. VALACYCLOVIR [Concomitant]
     Active Substance: VALACYCLOVIR HYDROCHLORIDE
  21. CIPROFLOXACIN. [Concomitant]
     Active Substance: CIPROFLOXACIN
  22. ADCIRCA [Concomitant]
     Active Substance: TADALAFIL
  23. NITROFURANTOIN MACROCRYSTALS [Concomitant]
     Active Substance: NITROFURANTOIN
     Dosage: 100 MG, UNK
     Dates: start: 20180501
  24. GABAPENTIN. [Concomitant]
     Active Substance: GABAPENTIN
     Dosage: 100 MG, UNK
     Dates: start: 20180614
  25. DICLOFENAC [Concomitant]
     Active Substance: DICLOFENAC
  26. LIDOCAINE HYDROCHLORIDE W/PRILOCAINE [Concomitant]
     Dosage: 2.5?2.5% UNK
     Dates: start: 20180314
  27. OPSUMIT [Suspect]
     Active Substance: MACITENTAN
     Indication: PULMONARY ARTERIAL HYPERTENSION
     Dosage: 10 MG, QD
     Route: 048
     Dates: start: 20160315
  28. VELTASSA [Concomitant]
     Active Substance: PATIROMER
  29. TRAJENTA [Concomitant]
     Active Substance: LINAGLIPTIN
     Dosage: 5 MG, UNK
     Dates: start: 20180616
  30. RENA?VITE [Concomitant]
     Active Substance: ASCORBIC ACID\BIOTIN\CALCIUM PANTOTHENATE\CYANOCOBALAMIN\FOLIC ACID\NIACINAMIDE\PYRIDOXINE HYDROCHLORIDE\RIBOFLAVIN\THIAMINE MONONITRATE
  31. CLOPIDOGREL [Concomitant]
     Active Substance: CLOPIDOGREL BISULFATE

REACTIONS (2)
  - Toe amputation [Unknown]
  - Toe operation [Unknown]

NARRATIVE: CASE EVENT DATE: 201808
